FAERS Safety Report 9223222 (Version 1)
Quarter: 2013Q2

REPORT INFORMATION
  Report Type: Spontaneous
  Country: MX (occurrence: MX)
  Receive Date: 20130410
  Receipt Date: 20130410
  Transmission Date: 20140414
  Serious: Yes (Other)
  Sender: FDA-Public Use
  Company Number: MX-GENZYME-THYM-1003751

PATIENT
  Age: 22 Year
  Sex: Female

DRUGS (5)
  1. THYMOGLOBULINE [Suspect]
     Indication: APLASTIC ANAEMIA
     Dosage: 2 CYCLES
     Route: 065
  2. MYCOPHENOLATE MOFETIL [Concomitant]
     Indication: APLASTIC ANAEMIA
     Dosage: 1 DF, TID
     Route: 065
  3. RED BLOOD CELLS [Concomitant]
     Indication: APLASTIC ANAEMIA
     Dosage: 38 U, UNK
     Route: 065
  4. RED BLOOD CELLS [Concomitant]
     Dosage: 4 U, UNK
     Route: 065
  5. PLATELETS [Concomitant]
     Indication: APLASTIC ANAEMIA
     Dosage: 1 U, UNK
     Route: 065
     Dates: start: 20130401

REACTIONS (1)
  - Drug ineffective [Unknown]
